FAERS Safety Report 15071149 (Version 1)
Quarter: 2018Q2

REPORT INFORMATION
  Report Type: Report from Study
  Country: US (occurrence: US)
  Receive Date: 20180626
  Receipt Date: 20180626
  Transmission Date: 20180711
  Serious: No
  Sender: FDA-Public Use
  Company Number: US-AMGEN-USASL2014088012

PATIENT
  Age: 64 Year
  Sex: Female
  Weight: 68.93 kg

DRUGS (4)
  1. PROLIA [Suspect]
     Active Substance: DENOSUMAB
     Indication: OSTEOPOROSIS
     Dosage: 6 MG, Q6MO
     Route: 058
     Dates: start: 20131108
  2. VAGIFEM [Concomitant]
     Active Substance: ESTRADIOL
     Dosage: UNK UNK, QHS
     Route: 067
  3. OMEPRAZOLE. [Concomitant]
     Active Substance: OMEPRAZOLE
     Indication: GASTROOESOPHAGEAL REFLUX DISEASE
     Dosage: 20 MG, BID
     Route: 048
     Dates: start: 20111003
  4. LEVOTHYROXINE. [Concomitant]
     Active Substance: LEVOTHYROXINE
     Indication: HYPOTHYROIDISM
     Dosage: 88 MUG, QD
     Route: 048
     Dates: start: 20081112

REACTIONS (3)
  - Eczema [Unknown]
  - Diarrhoea [Recovered/Resolved]
  - Bronchitis [Unknown]
